FAERS Safety Report 9104409 (Version 2)
Quarter: 2013Q1

REPORT INFORMATION
  Report Type: Report from Study
  Country: CA (occurrence: CA)
  Receive Date: 20130219
  Receipt Date: 20130222
  Transmission Date: 20140127
  Serious: Yes (Other)
  Sender: FDA-Public Use
  Company Number: CA-ROCHE-1192315

PATIENT
  Age: 57 None
  Sex: Female
  Weight: 67 kg

DRUGS (8)
  1. AVASTIN [Suspect]
     Indication: GLIOBLASTOMA
     Route: 042
     Dates: start: 20120803
  2. AVASTIN [Suspect]
     Route: 042
     Dates: start: 20121108
  3. AVASTIN [Suspect]
     Route: 042
     Dates: start: 20121206
  4. AVASTIN [Suspect]
     Route: 042
     Dates: start: 20130131
  5. KEPPRA [Concomitant]
  6. CLOBAZAM [Concomitant]
  7. TEGRETOL [Concomitant]
  8. VAGIFEM [Concomitant]

REACTIONS (1)
  - Balance disorder [Not Recovered/Not Resolved]
